FAERS Safety Report 22936953 (Version 7)
Quarter: 2023Q4

REPORT INFORMATION
  Report Type: Report from Study
  Country: US (occurrence: US)
  Receive Date: 20230912
  Receipt Date: 20231102
  Transmission Date: 20240110
  Serious: Yes (Hospitalization, Other)
  Sender: FDA-Public Use
  Company Number: US-JNJFOC-20230826296

PATIENT
  Age: 54 Year
  Sex: Male
  Weight: 68.2 kg

DRUGS (8)
  1. SELEXIPAG [Suspect]
     Active Substance: SELEXIPAG
     Indication: Pulmonary hypertension
     Route: 048
  2. SELEXIPAG [Suspect]
     Active Substance: SELEXIPAG
     Route: 048
  3. SELEXIPAG [Suspect]
     Active Substance: SELEXIPAG
     Route: 048
  4. SELEXIPAG [Suspect]
     Active Substance: SELEXIPAG
     Route: 048
     Dates: start: 20230807
  5. SELEXIPAG [Suspect]
     Active Substance: SELEXIPAG
     Route: 048
  6. MACITENTAN [Suspect]
     Active Substance: MACITENTAN
     Indication: Pulmonary hypertension
     Route: 048
     Dates: start: 20230807
  7. SILDENAFIL CITRATE [Concomitant]
     Active Substance: SILDENAFIL CITRATE
  8. ELIQUIS [Concomitant]
     Active Substance: APIXABAN

REACTIONS (15)
  - Prostate cancer stage II [Not Recovered/Not Resolved]
  - Oxygen saturation decreased [Unknown]
  - Chronic hepatic failure [Unknown]
  - Dehydration [Unknown]
  - SARS-CoV-2 test positive [Unknown]
  - Headache [Unknown]
  - Pain in jaw [Unknown]
  - Pain in extremity [Unknown]
  - Fluid retention [Unknown]
  - Pallor [Unknown]
  - Hypopnoea [Unknown]
  - Fatigue [Unknown]
  - Off label use [Unknown]
  - Dyspnoea [Recovering/Resolving]
  - Adverse drug reaction [Not Recovered/Not Resolved]

NARRATIVE: CASE EVENT DATE: 20230822
